FAERS Safety Report 22944284 (Version 2)
Quarter: 2025Q2

REPORT INFORMATION
  Report Type: Report from Study
  Country: NL (occurrence: NL)
  Receive Date: 20230914
  Receipt Date: 20250503
  Transmission Date: 20250716
  Serious: Yes (Death, Other)
  Sender: AUROBINDO
  Company Number: NL-BRISTOL-MYERS SQUIBB COMPANY-2023-121959

PATIENT
  Age: 62 Year
  Sex: Male

DRUGS (2)
  1. APIXABAN [Suspect]
     Active Substance: APIXABAN
     Indication: Embolism
     Dosage: 5 MILLIGRAM, TWO TIMES A DAY
     Route: 048
  2. CARBASPIRIN CALCIUM [Suspect]
     Active Substance: CARBASPIRIN CALCIUM
     Indication: Embolism
     Dosage: 100 MILLIGRAM, ONCE A DAY
     Route: 065

REACTIONS (1)
  - Haemorrhagic stroke [Fatal]
